FAERS Safety Report 16345330 (Version 1)
Quarter: 2019Q2

REPORT INFORMATION
  Report Type: Spontaneous
  Country: GB (occurrence: GB)
  Receive Date: 20190523
  Receipt Date: 20190523
  Transmission Date: 20190711
  Serious: Yes (Other)
  Sender: FDA-Public Use
  Company Number: GB-TEVA-2019-GB-1053088

PATIENT
  Age: 72 Year
  Sex: Female

DRUGS (11)
  1. BISOPROLOL [Concomitant]
     Active Substance: BISOPROLOL
  2. PROPRANOLOL [Concomitant]
     Active Substance: PROPRANOLOL HYDROCHLORIDE
  3. TICAGRELOR. [Concomitant]
     Active Substance: TICAGRELOR
  4. LANSOPRAZOLE. [Concomitant]
     Active Substance: LANSOPRAZOLE
  5. MEBEVERINE [Concomitant]
     Active Substance: MEBEVERINE
  6. ZOPICLONE [Concomitant]
     Active Substance: ZOPICLONE
  7. ATORVASTATIN [Suspect]
     Active Substance: ATORVASTATIN
     Indication: BLOOD CHOLESTEROL INCREASED
     Dosage: 80 MILLIGRAM DAILY; AT NIGHT
     Route: 048
  8. ACETYLSALICYLIC ACID [Concomitant]
     Active Substance: ASPIRIN
  9. AMLODIPINE [Concomitant]
     Active Substance: AMLODIPINE BESYLATE
  10. RAMIPRIL. [Concomitant]
     Active Substance: RAMIPRIL
  11. CETIRIZINE [Concomitant]
     Active Substance: CETIRIZINE HYDROCHLORIDE

REACTIONS (4)
  - Muscle spasms [Recovered/Resolved]
  - Mouth haemorrhage [Unknown]
  - Depressed mood [Recovering/Resolving]
  - Myalgia [Recovered/Resolved]
